FAERS Safety Report 5184476-0 (Version None)
Quarter: 2006Q4

REPORT INFORMATION
  Report Type: 
  Country: None (occurrence: None)
  Receive Date: 20061220
  Receipt Date: 20061204
  Transmission Date: 20070319
  Serious: Yes (Disabling)
  Sender: FDA-Public Use
  Company Number: PHBS2006BE18712

PATIENT
  Age: 60 Year
  Sex: Female

DRUGS (6)
  1. ZOMETA [Suspect]
     Indication: METASTASES TO BONE
     Dosage: 4 MG, TIW
     Route: 065
     Dates: start: 20021101, end: 20060727
  2. 5-FU + EPIRUBICIN + CYCLOPHOSPHAMIDE [Concomitant]
  3. TAXOTERE [Concomitant]
  4. CAELYX [Concomitant]
  5. XELODA [Concomitant]
  6. AROMATASE INHIBITOR [Concomitant]
     Indication: METASTASES TO BONE

REACTIONS (1)
  - OSTEONECROSIS [None]
